FAERS Safety Report 8019543-7 (Version None)
Quarter: 2012Q1

REPORT INFORMATION
  Report Type: 
  Country: None (occurrence: None)
  Receive Date: 20120103
  Receipt Date: 20111221
  Transmission Date: 20120608
  Serious: Yes (Life-Threatening, Hospitalization)
  Sender: FDA-Public Use
  Company Number: US-BAYER-2011-093131

PATIENT
  Age: 80 Year
  Sex: Female

DRUGS (8)
  1. AVELOX [Suspect]
     Indication: SINUSITIS
     Dosage: 400 MG, QD
     Route: 048
     Dates: start: 20110516
  2. AVELOX [Suspect]
     Indication: BRONCHITIS
     Dosage: 400 MG, QD
     Route: 048
     Dates: start: 20110829
  3. NEXIUM [Concomitant]
  4. PROAIR HFA [Concomitant]
  5. SINGULAIR [Concomitant]
  6. SIMVASTATIN [Concomitant]
  7. BENICAR HCT [Concomitant]
  8. SYNTHROID [Concomitant]

REACTIONS (3)
  - DYSPNOEA [None]
  - DIVERTICULITIS [None]
  - ATRIAL FIBRILLATION [None]
